FAERS Safety Report 8889136 (Version 7)
Quarter: 2013Q2

REPORT INFORMATION
  Report Type: Spontaneous
  Country: US (occurrence: US)
  Receive Date: 20121106
  Receipt Date: 20130510
  Transmission Date: 20140414
  Serious: Yes (Hospitalization, Other)
  Sender: FDA-Public Use
  Company Number: US-009507513-1201USA00884

PATIENT
  Sex: Female

DRUGS (17)
  1. FOSAMAX [Suspect]
     Dosage: 70 MG, QW
     Route: 048
     Dates: start: 200601, end: 200801
  2. ALENDRONATE SODIUM [Suspect]
     Indication: OSTEOPOROSIS PROPHYLAXIS
     Dosage: 70 MG, QW
     Route: 048
     Dates: start: 200802, end: 201006
  3. CALCIUM (UNSPECIFIED) [Concomitant]
     Dosage: 600 MG, QD
     Dates: start: 1990
  4. VITAMIN B (UNSPECIFIED) [Concomitant]
     Dosage: UNK, QD
     Dates: start: 1990
  5. ASCORBIC ACID [Concomitant]
     Dosage: UNK, QD
     Dates: start: 1990
  6. VITAMIN D (UNSPECIFIED) [Concomitant]
     Dosage: UNK, QD
     Dates: start: 1990
  7. VITAMIN E [Concomitant]
     Dosage: UNK, QD
     Dates: start: 1990
  8. OMEGA-3 MARINE TRIGLYCERIDES [Concomitant]
     Dosage: 1 DF, QD
     Dates: start: 1990
  9. CORTICOSTEROIDS (UNSPECIFIED) [Concomitant]
     Dosage: UNK
     Dates: start: 2003
  10. LISINOPRIL [Concomitant]
     Indication: HYPERTENSION
     Dosage: UNK
     Dates: start: 2000
  11. HYDROCHLOROTHIAZIDE [Concomitant]
     Indication: HYPERTENSION
     Dosage: UNK
     Dates: start: 2000
  12. METOPROLOL [Concomitant]
     Indication: HYPERTENSION
     Dosage: UNK
     Dates: start: 2004
  13. LIPITOR [Concomitant]
     Indication: BLOOD CHOLESTEROL INCREASED
     Dosage: UNK
     Dates: start: 2000, end: 2011
  14. PRAVASTATIN SODIUM [Concomitant]
     Indication: BLOOD CHOLESTEROL INCREASED
     Dosage: UNK
     Dates: start: 2011
  15. AMLODIPINE BESYLATE [Concomitant]
     Indication: PAIN IN EXTREMITY
     Dosage: UNK
     Dates: start: 2003, end: 2009
  16. ALPRAZOLAM [Concomitant]
     Indication: POOR QUALITY SLEEP
     Dosage: UNK, PRN
     Dates: start: 2004
  17. PREDNISONE [Concomitant]
     Indication: MYALGIA
     Dosage: UNK
     Dates: start: 2003

REACTIONS (27)
  - Femur fracture [Recovered/Resolved]
  - Intramedullary rod insertion [Unknown]
  - Femur fracture [Unknown]
  - Tibia fracture [Unknown]
  - Vertebroplasty [Unknown]
  - Anaemia [Unknown]
  - Spinal fracture [Unknown]
  - Spinal compression fracture [Unknown]
  - Joint effusion [Unknown]
  - Pneumonia [Unknown]
  - Fall [Unknown]
  - Fall [Unknown]
  - Type 2 diabetes mellitus [Unknown]
  - Glaucoma [Unknown]
  - Limb asymmetry [Unknown]
  - Fall [Unknown]
  - Joint injury [Unknown]
  - Excoriation [Unknown]
  - Mobility decreased [Unknown]
  - Periarthritis [Unknown]
  - Muscular weakness [Unknown]
  - Atrial fibrillation [Unknown]
  - Diverticulum [Unknown]
  - Rib fracture [Unknown]
  - Urinary tract infection [Unknown]
  - Autoimmune disorder [Unknown]
  - Drug ineffective [Unknown]
